FAERS Safety Report 24346822 (Version 1)
Quarter: 2024Q3

REPORT INFORMATION
  Report Type: Spontaneous
  Country: GB (occurrence: GB)
  Receive Date: 20240921
  Receipt Date: 20240921
  Transmission Date: 20241016
  Serious: Yes (Life-Threatening, Hospitalization, Other)
  Sender: TEVA
  Company Number: None

PATIENT
  Age: 74 Year
  Sex: Female

DRUGS (8)
  1. PREGABALIN [Suspect]
     Active Substance: PREGABALIN
     Indication: Back pain
     Dosage: 300 MILLIGRAM, BID (TITRATED UPTO)
     Route: 065
  2. PREGABALIN [Suspect]
     Active Substance: PREGABALIN
     Indication: Back pain
     Dosage: 50 MILLIGRAM, QD (TITRATED UPTO) (NORTHERN IRELAND)
     Route: 065
  3. PREGABALIN [Suspect]
     Active Substance: PREGABALIN
     Indication: Back pain
     Dosage: 5 MILLIGRAM, 50 MG, QD (TITRATED UPTO)
     Route: 065
  4. PREGABALIN [Suspect]
     Active Substance: PREGABALIN
     Indication: Back pain
     Dosage: UNK (TITRATED DOWN)
     Route: 065
  5. ACETAMINOPHEN [Concomitant]
     Active Substance: ACETAMINOPHEN
     Indication: Product used for unknown indication
     Dosage: 1 GRAM, QID
     Route: 065
  6. SUMATRIPTAN [Concomitant]
     Active Substance: SUMATRIPTAN\SUMATRIPTAN SUCCINATE
     Indication: Migraine
     Dosage: TIME INTERVAL: AS NECESSARY: 50 MILLIGRAM, PRN
     Route: 065
  7. CANDESARTAN [Concomitant]
     Active Substance: CANDESARTAN
     Indication: Product used for unknown indication
     Dosage: 2 MILLIGRAM, QD
     Route: 065
  8. LEVOTHYROXINE [Concomitant]
     Active Substance: LEVOTHYROXINE\LEVOTHYROXINE SODIUM
     Indication: Product used for unknown indication
     Dosage: 75 MILLIGRAM, QD
     Route: 065

REACTIONS (8)
  - Suicidal ideation [Recovering/Resolving]
  - Major depression [Recovering/Resolving]
  - Hallucination, visual [Recovering/Resolving]
  - Abnormal behaviour [Recovering/Resolving]
  - Screaming [Recovering/Resolving]
  - Withdrawal syndrome [Recovering/Resolving]
  - Social avoidant behaviour [Recovering/Resolving]
  - Cognitive disorder [Recovering/Resolving]
